FAERS Safety Report 6850665-X (Version None)
Quarter: 2010Q3

REPORT INFORMATION
  Report Type: 
  Country: None (occurrence: None)
  Receive Date: 20100716
  Receipt Date: 20071019
  Transmission Date: 20110219
  Serious: No
  Sender: FDA-Public Use
  Company Number: US-PFIZER INC-2007089173

PATIENT
  Sex: Male
  Weight: 74.8 kg

DRUGS (2)
  1. CHANTIX [Suspect]
     Indication: SMOKING CESSATION THERAPY
     Dates: start: 20071001, end: 20071018
  2. XANAX [Concomitant]

REACTIONS (8)
  - ANXIETY [None]
  - COUGH [None]
  - FEELING ABNORMAL [None]
  - MALAISE [None]
  - NAUSEA [None]
  - PALPITATIONS [None]
  - PYREXIA [None]
  - TENSION [None]
